FAERS Safety Report 6274272-5 (Version None)
Quarter: 2009Q3

REPORT INFORMATION
  Report Type: 
  Country: None (occurrence: None)
  Receive Date: 20090720
  Receipt Date: 20090708
  Transmission Date: 20100115
  Serious: Yes (Disabling)
  Sender: FDA-Public Use
  Company Number: BD-B.I. PHARMACEUTICALS,INC./RIDGEFIELD-2009-AU-00353AU

PATIENT
  Age: 62 Year
  Sex: Male

DRUGS (2)
  1. SPIRIVA [Suspect]
  2. SERETIDE [Concomitant]

REACTIONS (2)
  - HYPOKINESIA [None]
  - MALAISE [None]
